FAERS Safety Report 24332261 (Version 1)
Quarter: 2024Q3

REPORT INFORMATION
  Report Type: Report from Study
  Country: IE (occurrence: IE)
  Receive Date: 20240918
  Receipt Date: 20240918
  Transmission Date: 20241017
  Serious: Yes (Other)
  Sender: MYLAN
  Company Number: IE-MYLANLABS-2024M1084221

PATIENT
  Age: 40 Year
  Sex: Female

DRUGS (16)
  1. GABAPENTIN [Suspect]
     Active Substance: GABAPENTIN
     Indication: New daily persistent headache
     Dosage: UNK
     Route: 065
  2. GABAPENTIN [Suspect]
     Active Substance: GABAPENTIN
     Indication: Migraine prophylaxis
  3. SERTRALINE [Suspect]
     Active Substance: SERTRALINE HYDROCHLORIDE
     Indication: New daily persistent headache
     Dosage: UNK
     Route: 065
  4. SERTRALINE [Suspect]
     Active Substance: SERTRALINE HYDROCHLORIDE
     Indication: Migraine prophylaxis
  5. AMITRIPTYLINE [Suspect]
     Active Substance: AMITRIPTYLINE
     Indication: New daily persistent headache
     Dosage: UNK
     Route: 065
  6. AMITRIPTYLINE [Suspect]
     Active Substance: AMITRIPTYLINE
     Indication: Migraine prophylaxis
  7. CARBAMAZEPINE [Suspect]
     Active Substance: CARBAMAZEPINE
     Indication: New daily persistent headache
     Dosage: UNK
     Route: 065
  8. CARBAMAZEPINE [Suspect]
     Active Substance: CARBAMAZEPINE
     Indication: Migraine prophylaxis
  9. DIHYDROERGOTAMINE [Suspect]
     Active Substance: DIHYDROERGOTAMINE
     Indication: New daily persistent headache
     Dosage: 11.25 MILLIGRAM
     Route: 042
  10. DIHYDROERGOTAMINE [Suspect]
     Active Substance: DIHYDROERGOTAMINE
     Indication: Migraine prophylaxis
  11. FLUNARIZINE [Suspect]
     Active Substance: FLUNARIZINE
     Indication: New daily persistent headache
     Dosage: UNK
     Route: 065
  12. FLUNARIZINE [Suspect]
     Active Substance: FLUNARIZINE
     Indication: Migraine prophylaxis
  13. TOPIRAMATE [Suspect]
     Active Substance: TOPIRAMATE
     Indication: New daily persistent headache
     Dosage: UNK
     Route: 065
  14. TOPIRAMATE [Suspect]
     Active Substance: TOPIRAMATE
     Indication: Migraine prophylaxis
  15. TIZANIDINE [Suspect]
     Active Substance: TIZANIDINE
     Indication: New daily persistent headache
     Dosage: UNK
     Route: 065
  16. TIZANIDINE [Suspect]
     Active Substance: TIZANIDINE
     Indication: Migraine prophylaxis

REACTIONS (2)
  - Treatment failure [Unknown]
  - Off label use [Unknown]
